FAERS Safety Report 11779800 (Version 1)
Quarter: 2015Q4

REPORT INFORMATION
  Report Type: Spontaneous
  Country: FR (occurrence: FR)
  Receive Date: 20151125
  Receipt Date: 20151125
  Transmission Date: 20160304
  Serious: Yes (Other)
  Sender: FDA-Public Use
  Company Number: FR-TEVA-610548ISR

PATIENT
  Age: 17 Year
  Sex: Female

DRUGS (8)
  1. RULID [Concomitant]
     Active Substance: ROXITHROMYCIN
     Dates: start: 20150909
  2. VIT B1 [Concomitant]
  3. TERCIAN [Interacting]
     Active Substance: CYAMEMAZINE
     Indication: PRODUCT USED FOR UNKNOWN INDICATION
     Dosage: 100 MILLIGRAM DAILY;
     Route: 048
     Dates: start: 20150909, end: 20150914
  4. LEVOTHYROX [Concomitant]
     Active Substance: LEVOTHYROXINE
  5. VITAMIN B6 [Concomitant]
     Active Substance: PYRIDOXINE HYDROCHLORIDE
  6. SULFARLEM [Concomitant]
     Active Substance: ANETHOLTRITHION
  7. FLUOXETINE [Suspect]
     Active Substance: FLUOXETINE HYDROCHLORIDE
     Indication: DEPRESSION
     Route: 048
  8. ABILIFY [Interacting]
     Active Substance: ARIPIPRAZOLE
     Indication: BORDERLINE PERSONALITY DISORDER
     Dosage: 5 MILLIGRAM DAILY;
     Route: 048
     Dates: start: 20150912, end: 20150914

REACTIONS (4)
  - Off label use [Unknown]
  - Suicide attempt [None]
  - Urinary retention [Recovered/Resolved]
  - Drug interaction [Unknown]

NARRATIVE: CASE EVENT DATE: 20150914
